FAERS Safety Report 9092197 (Version 1)
Quarter: 2013Q1

REPORT INFORMATION
  Report Type: Spontaneous
  Country: US (occurrence: US)
  Receive Date: 20130131
  Receipt Date: 20130131
  Transmission Date: 20140127
  Serious: No
  Sender: FDA-Public Use
  Company Number: US-ABBOTT-12P-163-1003444-00

PATIENT
  Sex: Male
  Weight: 89.89 kg

DRUGS (5)
  1. HUMIRA [Suspect]
     Indication: PSORIATIC ARTHROPATHY
     Dates: start: 201102
  2. HUMIRA [Suspect]
     Indication: PSORIASIS
  3. CRESTOR [Concomitant]
     Indication: HYPERLIPIDAEMIA
  4. XANAX [Concomitant]
     Indication: STRESS
  5. TOPICAL STEROID [Concomitant]
     Indication: PSORIASIS

REACTIONS (2)
  - Drug ineffective [Not Recovered/Not Resolved]
  - Arthralgia [Not Recovered/Not Resolved]
